FAERS Safety Report 25744967 (Version 1)
Quarter: 2025Q3

REPORT INFORMATION
  Report Type: Spontaneous
  Country: BR (occurrence: BR)
  Receive Date: 20250901
  Receipt Date: 20250901
  Transmission Date: 20251021
  Serious: Yes (Hospitalization, Other)
  Sender: NOVITIUM PHARMA
  Company Number: BR-NOVITIUMPHARMA-2025BRNVP02194

PATIENT
  Age: 26 Year
  Sex: Female

DRUGS (6)
  1. PREDNISONE [Suspect]
     Active Substance: PREDNISONE
     Indication: Autoimmune hepatitis
     Dates: start: 2020
  2. PREDNISONE [Suspect]
     Active Substance: PREDNISONE
  3. AZATHIOPRINE [Concomitant]
     Active Substance: AZATHIOPRINE
     Indication: Autoimmune hepatitis
     Dates: start: 2020
  4. CYCLOSPORINE [Concomitant]
     Active Substance: CYCLOSPORINE
     Indication: Autoimmune hepatitis
     Dates: start: 2020
  5. TACROLIMUS [Concomitant]
     Active Substance: TACROLIMUS
     Indication: Autoimmune hepatitis
  6. TACROLIMUS [Concomitant]
     Active Substance: TACROLIMUS
     Dosage: INCREASED UNTIL 6MG ONCE A DAY

REACTIONS (2)
  - Cytomegalovirus infection reactivation [Recovered/Resolved]
  - Exposure during pregnancy [Unknown]
